FAERS Safety Report 8183492-4 (Version None)
Quarter: 2012Q1

REPORT INFORMATION
  Report Type: 
  Country: None (occurrence: None)
  Receive Date: 20120130
  Receipt Date: 20110729
  Transmission Date: 20120608
  Serious: Yes (Hospitalization)
  Sender: FDA-Public Use
  Company Number: 038101

PATIENT
  Age: 20 Year
  Sex: Female
  Weight: 100 kg

DRUGS (2)
  1. LEVETIRACETAM [Suspect]
     Dosage: 250 MG QD ORAL
     Route: 048
     Dates: start: 20010101
  2. TOPIRAMATE [Concomitant]

REACTIONS (1)
  - EPILEPSY [None]
